FAERS Safety Report 5492503-6 (Version None)
Quarter: 2007Q4

REPORT INFORMATION
  Report Type: 
  Country: None (occurrence: None)
  Receive Date: 20071022
  Receipt Date: 20071022
  Transmission Date: 20080405
  Serious: Yes (Other)
  Sender: FDA-Public Use
  Company Number: GB-BOEHRINGER INGELHEIM PHARMACEUTICALS, INC.-2007-UK-01790UK

PATIENT
  Sex: Female

DRUGS (3)
  1. PRAMIPEXOLE DIHYDROCHLORIDE [Suspect]
     Indication: PARKINSON'S DISEASE
     Dosage: 0.36MG, 3X A DAY
     Route: 048
     Dates: start: 20051130, end: 20070621
  2. LEVOTHYROXINE SODIUM [Concomitant]
     Route: 048
  3. DOMPERIDONE [Concomitant]
     Route: 048

REACTIONS (3)
  - ABDOMINAL WALL MASS [None]
  - RETROPERITONEAL FIBROSIS [None]
  - UTERINE PROLAPSE [None]
